FAERS Safety Report 4314771-6 (Version None)
Quarter: 2004Q1

REPORT INFORMATION
  Report Type: 
  Country: None (occurrence: None)
  Receive Date: 20040310
  Receipt Date: 20040301
  Transmission Date: 20041129
  Serious: Yes (Life-Threatening, Other)
  Sender: FDA-Public Use
  Company Number: US-BRISTOL-MYERS SQUIBB COMPANY-12520821

PATIENT
  Age: 57 Year
  Sex: Male

DRUGS (5)
  1. PACLITAXEL [Suspect]
     Indication: KAPOSI'S SARCOMA
     Dosage: DOSE REDUCED TO 60 MG/M2
  2. STAVUDINE [Interacting]
     Indication: HIV INFECTION
  3. INDINAVIR [Interacting]
     Indication: HIV INFECTION
  4. LAMIVUDINE [Interacting]
     Indication: HIV INFECTION
  5. RITONAVIR [Interacting]
     Indication: HIV INFECTION

REACTIONS (9)
  - ALOPECIA [None]
  - DRUG INTERACTION [None]
  - KAPOSI'S SARCOMA [None]
  - LEUKOPENIA [None]
  - MALIGNANT NEOPLASM PROGRESSION [None]
  - PLATELET COUNT DECREASED [None]
  - PYREXIA [None]
  - STAPHYLOCOCCAL INFECTION [None]
  - TREATMENT NONCOMPLIANCE [None]
